FAERS Safety Report 16939265 (Version 1)
Quarter: 2019Q4

REPORT INFORMATION
  Report Type: Spontaneous
  Country: HK (occurrence: HK)
  Receive Date: 20191021
  Receipt Date: 20191021
  Transmission Date: 20200122
  Serious: Yes (Other)
  Sender: FDA-Public Use
  Company Number: HK-DENTSPLY-2019SCDP000555

PATIENT
  Age: 7 Year
  Sex: Female

DRUGS (1)
  1. LIDOCAINE HYDROCHLORIDE AND EPINEPHRINE BITARTRATE [Suspect]
     Active Substance: EPINEPHRINE BITARTRATE\LIDOCAINE HYDROCHLORIDE
     Indication: LOCAL ANAESTHESIA
     Dosage: UNK

REACTIONS (4)
  - Type IV hypersensitivity reaction [Unknown]
  - Angioedema [Unknown]
  - Rash erythematous [Unknown]
  - Rash [Unknown]
